FAERS Safety Report 23386187 (Version 1)
Quarter: 2024Q1

REPORT INFORMATION
  Report Type: Report from Study
  Country: US (occurrence: US)
  Receive Date: 20240110
  Receipt Date: 20240110
  Transmission Date: 20240409
  Serious: Yes (Other)
  Sender: FDA-Public Use
  Company Number: US-TEVA-VS-3136216

PATIENT

DRUGS (7)
  1. DEXAMETHASONE [Suspect]
     Active Substance: DEXAMETHASONE
     Indication: Lymphoma
     Dosage: DAILY ON DAY 2, 3 AND 4 OF EVERY 28 DAYS CYCLE. PART OF MODIFIED SMILE REGIMEN
     Route: 065
  2. PEGASPARGASE [Suspect]
     Active Substance: PEGASPARGASE
     Indication: Lymphoma
     Dosage: 2500 UNITS/M2 ON DAY 8 OF EVERY 28 DAYS CYCLE. PART OF MODIFIED SMILE REGIMEN
     Route: 042
  3. LEUCOVORIN [Concomitant]
     Active Substance: LEUCOVORIN\LEUCOVORIN CALCIUM
     Indication: Chemotherapy side effect prophylaxis
     Route: 065
  4. IFOSFAMIDE [Suspect]
     Active Substance: IFOSFAMIDE
     Indication: Lymphoma
     Dosage: EVERY 28 DAYS CYCLE. PART OF MODIFIED SMILE REGIMEN
     Route: 050
  5. ETOPOSIDE [Suspect]
     Active Substance: ETOPOSIDE
     Indication: Lymphoma
     Dosage: ON DAY 2-4 OF EVERY 28 DAYS CYCLE. PART OF MODIFIED SMILE REGIMEN
     Route: 065
  6. MESNA [Concomitant]
     Active Substance: MESNA
     Indication: Chemotherapy side effect prophylaxis
     Route: 065
  7. METHOTREXATE [Suspect]
     Active Substance: METHOTREXATE
     Indication: Lymphoma
     Dosage: ON DAY 1 OF EVERY 28 DAYS CYCLE. PART OF MODIFIED SMILE REGIMEN
     Route: 065

REACTIONS (1)
  - Nephropathy toxic [Unknown]
